FAERS Safety Report 22102204 (Version 1)
Quarter: 2023Q1

REPORT INFORMATION
  Report Type: Spontaneous
  Country: US (occurrence: None)
  Receive Date: 20230315
  Receipt Date: 20230315
  Transmission Date: 20230417
  Serious: Yes (Disabling)
  Sender: FDA-Public Use
  Company Number: None

PATIENT
  Age: 48 Year
  Sex: Female
  Weight: 77.85 kg

DRUGS (8)
  1. DUPIXENT [Suspect]
     Active Substance: DUPILUMAB
     Indication: Dermatitis atopic
     Dates: end: 20230213
  2. SYNTHROID [Concomitant]
     Active Substance: LEVOTHYROXINE SODIUM
  3. VYVANSE [Concomitant]
     Active Substance: LISDEXAMFETAMINE DIMESYLATE
  4. SPIRONOLACTONE [Concomitant]
     Active Substance: SPIRONOLACTONE
  5. ALBUTEROL [Concomitant]
     Active Substance: ALBUTEROL
  6. ZYRTEC [Concomitant]
     Active Substance: CETIRIZINE HYDROCHLORIDE
  7. CALCIUM [Concomitant]
     Active Substance: CALCIUM
  8. VITAMIN D [Concomitant]
     Active Substance: VITAMIN D NOS

REACTIONS (7)
  - Arthralgia [None]
  - Arthralgia [None]
  - Arthralgia [None]
  - Back pain [None]
  - Arthralgia [None]
  - Conjunctivitis [None]
  - Toothache [None]

NARRATIVE: CASE EVENT DATE: 20221001
